FAERS Safety Report 7627261-X (Version None)
Quarter: 2011Q3

REPORT INFORMATION
  Report Type: 
  Country: None (occurrence: None)
  Receive Date: 20110721
  Receipt Date: 20110712
  Transmission Date: 20111222
  Serious: Yes (Hospitalization)
  Sender: FDA-Public Use
  Company Number: PHHY2011US28971

PATIENT
  Sex: Female

DRUGS (4)
  1. GILENYA [Suspect]
     Indication: MULTIPLE SCLEROSIS
     Dosage: 0.5 MG, BID
     Route: 048
  2. LOSARTAN POTASSIUM [Concomitant]
  3. AMITRIPTYLINE HCL [Concomitant]
     Dosage: 50 MG, UNK
  4. HORMONAL CONTRACEPTIVES [Concomitant]

REACTIONS (3)
  - PARAESTHESIA [None]
  - CHEST DISCOMFORT [None]
  - BLOOD PRESSURE INCREASED [None]
